FAERS Safety Report 9615830 (Version 1)
Quarter: 2013Q4

REPORT INFORMATION
  Report Type: Spontaneous
  Country: US (occurrence: US)
  Receive Date: 20131011
  Receipt Date: 20131011
  Transmission Date: 20140711
  Serious: No
  Sender: FDA-Public Use
  Company Number: US-PURDUE-USA-2013-0098832

PATIENT
  Sex: Female
  Weight: 70.3 kg

DRUGS (1)
  1. BUTRANS [Suspect]
     Indication: PAIN
     Dosage: 5 MCG, UNK
     Route: 062
     Dates: start: 20121219

REACTIONS (7)
  - Application site scab [Unknown]
  - Application site burn [Unknown]
  - Bronchitis [Unknown]
  - Abnormal loss of weight [Unknown]
  - Unevaluable event [Unknown]
  - Application site pain [Unknown]
  - Dyspnoea [Unknown]
